FAERS Safety Report 17107045 (Version 1)
Quarter: 2019Q4

REPORT INFORMATION
  Report Type: Report from Study
  Country: GB (occurrence: GB)
  Receive Date: 20191203
  Receipt Date: 20191203
  Transmission Date: 20200122
  Serious: Yes (Hospitalization, Other)
  Sender: FDA-Public Use
  Company Number: GB-JNJFOC-20191133854

PATIENT
  Sex: Male

DRUGS (17)
  1. EPLERENONE. [Concomitant]
     Active Substance: EPLERENONE
  2. PARACETAMOL [Concomitant]
     Active Substance: ACETAMINOPHEN
  3. GLYCERYL TRINITRATE [Concomitant]
     Active Substance: NITROGLYCERIN
     Route: 065
  4. STELARA [Suspect]
     Active Substance: USTEKINUMAB
     Indication: CROHN^S DISEASE
     Route: 058
     Dates: start: 2019
  5. ORAMORPH [Concomitant]
     Active Substance: MORPHINE SULFATE
     Route: 065
  6. ZOMORPH [Concomitant]
     Active Substance: MORPHINE SULFATE
  7. PROCHLORPERAZINE. [Concomitant]
     Active Substance: PROCHLORPERAZINE
  8. BISOPROLOL [Concomitant]
     Active Substance: BISOPROLOL
  9. ATORVASTATIN [Concomitant]
     Active Substance: ATORVASTATIN
  10. MAGNASPARTATE [Concomitant]
  11. SANDOCAL 1000 [Concomitant]
  12. PREDNISOLONE. [Concomitant]
     Active Substance: PREDNISOLONE
  13. ASPIRIN                            /00002701/ [Concomitant]
     Active Substance: ASPIRIN
  14. ADCAL D3 [Concomitant]
     Active Substance: CALCIUM CARBONATE\CHOLECALCIFEROL
  15. MST                                /00021210/ [Concomitant]
  16. GABAPENTIN. [Concomitant]
     Active Substance: GABAPENTIN
  17. LANSOPRAZOLE. [Concomitant]
     Active Substance: LANSOPRAZOLE

REACTIONS (9)
  - Body height decreased [Unknown]
  - Blood calcium decreased [Unknown]
  - Myocardial infarction [Unknown]
  - Intracardiac thrombus [Unknown]
  - Electrolyte depletion [Unknown]
  - Intestinal resection [Unknown]
  - Diarrhoea [Unknown]
  - Influenza like illness [Unknown]
  - Tooth disorder [Unknown]

NARRATIVE: CASE EVENT DATE: 2019
